FAERS Safety Report 10984155 (Version 2)
Quarter: 2015Q2

REPORT INFORMATION
  Report Type: Spontaneous
  Country: FR (occurrence: FR)
  Receive Date: 20150403
  Receipt Date: 20150416
  Transmission Date: 20150821
  Serious: Yes (Hospitalization)
  Sender: FDA-Public Use
  Company Number: FR-PFIZER INC-2015109907

PATIENT
  Age: 59 Year
  Sex: Male

DRUGS (8)
  1. LOVENOX [Suspect]
     Active Substance: ENOXAPARIN SODIUM
     Dosage: UNK
     Dates: start: 20150214, end: 20150219
  2. BECILAN [Concomitant]
     Active Substance: PYRIDOXINE
  3. INEXIUM /01479302/ [Suspect]
     Active Substance: ESOMEPRAZOLE MAGNESIUM
     Dosage: UNK
     Route: 048
     Dates: start: 20150220, end: 20150223
  4. LASILIX [Concomitant]
     Active Substance: FUROSEMIDE
  5. SERESTA [Concomitant]
     Active Substance: OXAZEPAM
  6. TAHOR [Suspect]
     Active Substance: ATORVASTATIN CALCIUM
     Dosage: 20 MG, UNK
     Route: 048
     Dates: end: 20150223
  7. TRIATEC [Concomitant]
     Active Substance: RAMIPRIL
  8. BEVITINE [Concomitant]
     Active Substance: THIAMINE

REACTIONS (1)
  - Thrombocytopenia [Recovered/Resolved]

NARRATIVE: CASE EVENT DATE: 20150222
